FAERS Safety Report 9225403 (Version 2)
Quarter: 2013Q2

REPORT INFORMATION
  Report Type: Spontaneous
  Country: CZ (occurrence: CZ)
  Receive Date: 20130411
  Receipt Date: 20130615
  Transmission Date: 20140414
  Serious: Yes (Other)
  Sender: FDA-Public Use
  Company Number: CZ-ROCHE-1212546

PATIENT
  Age: 77 Year
  Sex: Female

DRUGS (2)
  1. ACTILYSE [Suspect]
     Indication: PULMONARY EMBOLISM
     Route: 040
  2. HEPARIN [Suspect]
     Indication: PULMONARY EMBOLISM
     Route: 065

REACTIONS (5)
  - Haemoglobin decreased [Unknown]
  - Puncture site haemorrhage [Unknown]
  - Tongue haemorrhage [Unknown]
  - Subcutaneous haematoma [Unknown]
  - Vessel puncture site haematoma [Unknown]
